FAERS Safety Report 26127211 (Version 1)
Quarter: 2025Q4

REPORT INFORMATION
  Report Type: Spontaneous
  Country: EU (occurrence: EU)
  Receive Date: 20251205
  Receipt Date: 20251205
  Transmission Date: 20260119
  Serious: Yes (Hospitalization)
  Sender: BAUSCH AND LOMB
  Company Number: None

PATIENT
  Age: 71 Year
  Sex: Male
  Weight: 73 kg

DRUGS (18)
  1. DEXAMETHASONE [Suspect]
     Active Substance: DEXAMETHASONE
     Indication: Plasma cell myeloma
     Dosage: EVERY MONDAY
     Route: 042
     Dates: start: 20250908, end: 20251117
  2. DEXAMETHASONE [Suspect]
     Active Substance: DEXAMETHASONE
     Dosage: DOSE RE-INTRODUCED
     Route: 065
  3. AMOXICILLIN [Suspect]
     Active Substance: AMOXICILLIN
     Indication: Plasma cell myeloma
     Route: 048
     Dates: start: 20250908, end: 20251117
  4. AMOXICILLIN [Suspect]
     Active Substance: AMOXICILLIN
     Dosage: DOSE RE-INTRODUCED
     Route: 065
  5. BACTRIM [Suspect]
     Active Substance: SULFAMETHOXAZOLE\TRIMETHOPRIM
     Indication: Plasma cell myeloma
     Dosage: MONDAYS, WEDNESDAYS, FRIDAYS
     Route: 048
     Dates: start: 20250908, end: 20251110
  6. BACTRIM [Suspect]
     Active Substance: SULFAMETHOXAZOLE\TRIMETHOPRIM
     Dosage: DOSE RE-INTRODUCED
     Route: 065
  7. VALACYCLOVIR HYDROCHLORIDE [Suspect]
     Active Substance: VALACYCLOVIR HYDROCHLORIDE
     Indication: Plasma cell myeloma
     Route: 048
     Dates: start: 20250908, end: 20251117
  8. VALACYCLOVIR HYDROCHLORIDE [Suspect]
     Active Substance: VALACYCLOVIR HYDROCHLORIDE
     Dosage: DOSE RE-INTRODUCED
     Route: 065
  9. REVLIMID [Suspect]
     Active Substance: LENALIDOMIDE
     Indication: Plasma cell myeloma
     Dosage: FOR 21 DAYS OF THE 28-DAY CYCLE
     Route: 048
     Dates: start: 20250908, end: 20251117
  10. REVLIMID [Suspect]
     Active Substance: LENALIDOMIDE
     Dosage: DOSE RE-INTRODUCED
     Route: 065
  11. VELCADE [Suspect]
     Active Substance: BORTEZOMIB
     Indication: Plasma cell myeloma
     Dosage: EVERY MONDAY
     Route: 042
     Dates: start: 20250908, end: 20251110
  12. VELCADE [Suspect]
     Active Substance: BORTEZOMIB
     Dosage: DOSE RE-INTRODUCED
     Route: 065
  13. DARZALEX [Suspect]
     Active Substance: DARATUMUMAB
     Indication: Plasma cell myeloma
     Dosage: THEN EVERY 15 DAYS
     Route: 042
     Dates: start: 20250908, end: 20251103
  14. DARZALEX [Suspect]
     Active Substance: DARATUMUMAB
     Dosage: DOSE RE-INTRODUCED
     Route: 065
  15. CETIRIZINE HYDROCHLORIDE [Suspect]
     Active Substance: CETIRIZINE HYDROCHLORIDE
     Indication: Plasma cell myeloma
     Dosage: EVERY MONDAY
     Route: 048
     Dates: start: 20250908, end: 20251117
  16. CETIRIZINE HYDROCHLORIDE [Suspect]
     Active Substance: CETIRIZINE HYDROCHLORIDE
     Dosage: DOSE RE-INTRODUCED
     Route: 065
  17. ELIQUIS [Suspect]
     Active Substance: APIXABAN
     Indication: Plasma cell myeloma
     Route: 048
     Dates: start: 20250908, end: 20251117
  18. ELIQUIS [Suspect]
     Active Substance: APIXABAN
     Dosage: DOSE RE-INTRODUCED
     Route: 065

REACTIONS (1)
  - Drug reaction with eosinophilia and systemic symptoms [Not Recovered/Not Resolved]

NARRATIVE: CASE EVENT DATE: 20251107
